FAERS Safety Report 17125809 (Version 2)
Quarter: 2020Q2

REPORT INFORMATION
  Report Type: Report from Study
  Country: None (occurrence: US)
  Receive Date: 20191208
  Receipt Date: 20200612
  Transmission Date: 20200713
  Serious: Yes (Hospitalization, Other)
  Sender: FDA-Public Use
  Company Number: US-ABBVIE-19P-163-3179230-00

PATIENT
  Age: 64 Year
  Sex: Male

DRUGS (2)
  1. IMBRUVICA [Suspect]
     Active Substance: IBRUTINIB
     Indication: CHRONIC LYMPHOCYTIC LEUKAEMIA
     Route: 048
     Dates: start: 20180507
  2. IMBRUVICA [Suspect]
     Active Substance: IBRUTINIB
     Route: 048
     Dates: start: 20180403

REACTIONS (6)
  - Sepsis [Unknown]
  - Skin irritation [Recovering/Resolving]
  - White blood cell count increased [Unknown]
  - Urinary tract infection [Unknown]
  - Platelet count decreased [Recovering/Resolving]
  - Body temperature abnormal [Unknown]

NARRATIVE: CASE EVENT DATE: 20191115
